FAERS Safety Report 9927745 (Version 1)
Quarter: 2014Q1

REPORT INFORMATION
  Report Type: Report from Study
  Country: US (occurrence: US)
  Receive Date: 20140227
  Receipt Date: 20140227
  Transmission Date: 20141002
  Serious: Yes (Death)
  Sender: FDA-Public Use
  Company Number: US-ROCHE-1353110

PATIENT
  Age: 60 Year
  Sex: Male

DRUGS (12)
  1. AVASTIN [Suspect]
     Indication: COLON CANCER
     Dosage: LAST DOSE PRIOR TO SAE 10/APR/2012
     Route: 041
  2. XELODA [Suspect]
     Indication: COLON CANCER
     Route: 065
  3. FUSILEV [Concomitant]
     Route: 041
  4. 5-FU [Concomitant]
     Route: 041
  5. OXYCONTIN [Concomitant]
     Route: 048
  6. SENOKOT [Concomitant]
  7. MIRALAX [Concomitant]
  8. SIMETHICONE [Concomitant]
     Route: 065
  9. PERCOCET [Concomitant]
  10. FOLINIC ACID [Concomitant]
  11. OXALIPLATIN [Concomitant]
  12. IRINOTECAN [Concomitant]

REACTIONS (14)
  - Colon cancer metastatic [Fatal]
  - Fatigue [Unknown]
  - Nausea [Unknown]
  - Anaemia [Recovering/Resolving]
  - Flatulence [Unknown]
  - Constipation [Unknown]
  - Abdominal pain [Unknown]
  - Tinnitus [Unknown]
  - Headache [Unknown]
  - Neuropathy peripheral [Unknown]
  - Disease progression [Unknown]
  - Pain [Unknown]
  - Gastrointestinal pain [Unknown]
  - Chronic obstructive pulmonary disease [Unknown]
